FAERS Safety Report 11453295 (Version 1)
Quarter: 2015Q3

REPORT INFORMATION
  Report Type: Spontaneous
  Country: US (occurrence: US)
  Receive Date: 20150903
  Receipt Date: 20150903
  Transmission Date: 20151125
  Serious: No
  Sender: FDA-Public Use
  Company Number: US-PFIZER INC-2015291583

PATIENT
  Sex: Female

DRUGS (1)
  1. VIAGRA [Suspect]
     Active Substance: SILDENAFIL CITRATE
     Dosage: UNK
     Route: 050

REACTIONS (2)
  - Urticaria [Not Recovered/Not Resolved]
  - Exposure via partner [Not Recovered/Not Resolved]

NARRATIVE: CASE EVENT DATE: 201508
